FAERS Safety Report 13134309 (Version 3)
Quarter: 2017Q1

REPORT INFORMATION
  Report Type: Report from Study
  Country: IT (occurrence: IT)
  Receive Date: 20170120
  Receipt Date: 20170206
  Transmission Date: 20170428
  Serious: Yes (Death, Hospitalization)
  Sender: FDA-Public Use
  Company Number: PHHY2017IT005983

PATIENT
  Age: 63 Year
  Sex: Female
  Weight: 59 kg

DRUGS (3)
  1. LDK378 [Suspect]
     Active Substance: CERITINIB
     Indication: PRIMARY MYELOFIBROSIS
     Dosage: 750 MG, QD
     Route: 048
     Dates: start: 20160923
  2. DEXAMETHASON [Concomitant]
     Active Substance: DEXAMETHASONE
     Indication: METASTASES TO CENTRAL NERVOUS SYSTEM
     Dosage: 2 MG, QD
     Route: 065
     Dates: start: 20161223
  3. PANTOPRAZOLE [Concomitant]
     Active Substance: PANTOPRAZOLE SODIUM
     Indication: PRODUCT USED FOR UNKNOWN INDICATION
     Dosage: 20 MG, UNK
     Route: 065
     Dates: start: 20161223

REACTIONS (4)
  - Primary myelofibrosis [Fatal]
  - Malignant neoplasm progression [Fatal]
  - Brain oedema [Unknown]
  - Metastases to central nervous system [Unknown]

NARRATIVE: CASE EVENT DATE: 20161223
